FAERS Safety Report 4546827-7 (Version None)
Quarter: 2005Q1

REPORT INFORMATION
  Report Type: 
  Country: None (occurrence: None)
  Receive Date: 20050105
  Receipt Date: 20041224
  Transmission Date: 20050727
  Serious: Yes (Hospitalization, Other)
  Sender: FDA-Public Use
  Company Number: 2004092934

PATIENT
  Age: 50 Year
  Sex: Female
  Weight: 42 kg

DRUGS (5)
  1. AZULFIDINE EN-TABS [Suspect]
     Indication: RHEUMATOID ARTHRITIS
     Dosage: 500 MG (250 MG, 1 IN 2 D), ORAL
     Route: 048
     Dates: start: 20041026, end: 20041112
  2. SOLU-MEDROL [Suspect]
     Indication: EXANTHEM
     Dosage: 125 MG, INTRAVENOUS
     Route: 042
     Dates: start: 20041104
  3. ALENDRONATE SODIUM [Concomitant]
  4. PREDNISOLONE [Concomitant]
  5. CALCITRIOL [Concomitant]

REACTIONS (11)
  - ALPHA HAEMOLYTIC STREPTOCOCCAL INFECTION [None]
  - DIARRHOEA [None]
  - DISEASE RECURRENCE [None]
  - EXANTHEM [None]
  - HEPATIC FUNCTION ABNORMAL [None]
  - IMMUNODEFICIENCY [None]
  - PLEURAL EFFUSION [None]
  - PRURITUS [None]
  - PYOTHORAX [None]
  - PYREXIA [None]
  - RASH GENERALISED [None]
